FAERS Safety Report 5033787-8 (Version None)
Quarter: 2006Q2

REPORT INFORMATION
  Report Type: 
  Country: None (occurrence: None)
  Receive Date: 20060518
  Receipt Date: 20050613
  Transmission Date: 20061013
  Serious: Yes (Other)
  Sender: FDA-Public Use
  Company Number: 2005088795

PATIENT
  Age: 24 Year
  Sex: Female
  Weight: 61.2356 kg

DRUGS (4)
  1. DEPO-PROVERA [Suspect]
     Indication: ENDOMETRIOSIS
     Dosage: SEE IMAGE
     Route: 030
     Dates: start: 20050315, end: 20050315
  2. DEPO-PROVERA [Suspect]
     Indication: ENDOMETRIOSIS
     Dosage: SEE IMAGE
     Route: 030
     Dates: start: 20050515, end: 20050515
  3. FIORICET [Suspect]
     Indication: ILL-DEFINED DISORDER
     Dates: end: 20050101
  4. DURAGESIC-100 [Concomitant]

REACTIONS (10)
  - ABDOMINAL DISTENSION [None]
  - ABDOMINAL PAIN UPPER [None]
  - ANXIETY [None]
  - CLUMSINESS [None]
  - DEPRESSION [None]
  - DYSARTHRIA [None]
  - FALL [None]
  - MEMORY IMPAIRMENT [None]
  - POLLAKIURIA [None]
  - WEIGHT DECREASED [None]
